FAERS Safety Report 11895596 (Version 2)
Quarter: 2016Q1

REPORT INFORMATION
  Report Type: Report from Study
  Country: US (occurrence: US)
  Receive Date: 20160107
  Receipt Date: 20160330
  Transmission Date: 20160526
  Serious: Yes (Hospitalization)
  Sender: FDA-Public Use
  Company Number: US-BIOGEN-2014BI132418

PATIENT
  Age: 62 Year
  Sex: Female

DRUGS (1)
  1. TYSABRI [Suspect]
     Active Substance: NATALIZUMAB
     Indication: MULTIPLE SCLEROSIS
     Route: 042
     Dates: start: 20090930

REACTIONS (9)
  - Urinary tract infection [Unknown]
  - Wound dehiscence [Not Recovered/Not Resolved]
  - Suture rupture [Unknown]
  - Urostomy [Not Recovered/Not Resolved]
  - Scar [Unknown]
  - Hernia [Recovered/Resolved]
  - Weight decreased [Recovered/Resolved]
  - Sepsis [Recovered/Resolved]
  - Kidney infection [Unknown]

NARRATIVE: CASE EVENT DATE: 201410
